FAERS Safety Report 8764975 (Version 2)
Quarter: 2012Q4

REPORT INFORMATION
  Report Type: 
  Country: US (occurrence: US)
  Receive Date: 20120902
  Receipt Date: 20120905
  Transmission Date: 20130627
  Serious: Yes (Hospitalization)
  Sender: FDA-Public Use
  Company Number: US-AMGEN-USASP2012054951

PATIENT
  Age: 68 Year
  Sex: Female

DRUGS (1)
  1. ENBREL [Suspect]
     Indication: PSORIATIC ARTHROPATHY
     Dosage: 50 UNK, qwk
     Dates: start: 20080530, end: 20120820

REACTIONS (7)
  - Knee arthroplasty [Recovered/Resolved]
  - Spinal operation [Recovered/Resolved]
  - Pulmonary congestion [Recovered/Resolved]
  - Asthenia [Recovered/Resolved]
  - Fatigue [Not Recovered/Not Resolved]
  - Decreased appetite [Not Recovered/Not Resolved]
  - Therapeutic response decreased [Not Recovered/Not Resolved]
